FAERS Safety Report 5157413-2 (Version None)
Quarter: 2006Q4

REPORT INFORMATION
  Report Type: 
  Country: None (occurrence: None)
  Receive Date: 20061127
  Receipt Date: 20061117
  Transmission Date: 20070319
  Serious: Yes (Other)
  Sender: FDA-Public Use
  Company Number: 2006UW25572

PATIENT
  Age: 63 Year
  Sex: Female
  Weight: 92.5 kg

DRUGS (11)
  1. ARIMIDEX [Suspect]
     Indication: BREAST CANCER FEMALE
     Route: 048
     Dates: start: 20050201
  2. CATAPRES [Concomitant]
  3. COREG [Concomitant]
  4. NEURONTIN [Concomitant]
  5. BENICAR [Concomitant]
  6. IRON [Concomitant]
  7. ALLOPURINOL [Concomitant]
  8. SYNTHROID [Concomitant]
  9. ASPIRIN [Concomitant]
  10. PROCRIT [Concomitant]
  11. B-12 [Concomitant]

REACTIONS (6)
  - ARTHRITIS [None]
  - HEADACHE [None]
  - JOINT INJURY [None]
  - OSTEOPOROSIS [None]
  - RENAL IMPAIRMENT [None]
  - RIB FRACTURE [None]
